FAERS Safety Report 9382274 (Version 1)
Quarter: 2013Q3

REPORT INFORMATION
  Report Type: Spontaneous
  Country: US (occurrence: US)
  Receive Date: 20130703
  Receipt Date: 20130703
  Transmission Date: 20140515
  Serious: Yes (Other)
  Sender: FDA-Public Use
  Company Number: US-TEVA-416699USA

PATIENT
  Sex: Male

DRUGS (1)
  1. THEOPHYLLINE [Suspect]

REACTIONS (1)
  - Coeliac disease [Unknown]
